FAERS Safety Report 9652686 (Version 2)
Quarter: 2013Q4

REPORT INFORMATION
  Report Type: Spontaneous
  Country: FR (occurrence: FR)
  Receive Date: 20131029
  Receipt Date: 20131029
  Transmission Date: 20140711
  Serious: Yes (Hospitalization)
  Sender: FDA-Public Use
  Company Number: FR-ASTRAZENECA-2013SE74972

PATIENT
  Age: 86 Year
  Sex: Male

DRUGS (10)
  1. INEXIUM [Suspect]
     Route: 048
     Dates: start: 20130703, end: 20130730
  2. PLAVIX [Suspect]
     Route: 048
     Dates: start: 20130723, end: 20130813
  3. TAHOR [Suspect]
     Indication: HYPERCHOLESTEROLAEMIA
     Route: 048
     Dates: end: 2013
  4. CARDENSIEL [Concomitant]
  5. BURINEX [Concomitant]
  6. ESIDREX [Concomitant]
  7. DIFFU K [Concomitant]
  8. CORDARONE [Concomitant]
  9. KARDEGIC [Concomitant]
  10. GANFORT [Concomitant]

REACTIONS (8)
  - Eosinophilia [Recovered/Resolved]
  - Acute coronary syndrome [Unknown]
  - Cardiac failure [Unknown]
  - Shock [Unknown]
  - Toxic skin eruption [Recovered/Resolved]
  - Renal failure [Unknown]
  - Rash maculo-papular [Recovered/Resolved]
  - Therapy cessation [Unknown]
